FAERS Safety Report 10447672 (Version 1)
Quarter: 2014Q3

REPORT INFORMATION
  Report Type: Spontaneous
  Country: US (occurrence: None)
  Receive Date: 20140910
  Receipt Date: 20140910
  Transmission Date: 20150326
  Serious: Yes (Hospitalization)
  Sender: FDA-Public Use
  Company Number: None

PATIENT
  Age: 55 Year
  Sex: Female
  Weight: 112 kg

DRUGS (1)
  1. INTRON A [Suspect]
     Active Substance: INTERFERON ALFA-2B
     Dosage: 276 MILLION IU, PATIENT STARTED INTERFERON 23MILLION UNITS SUBCU MON, WED, FRI ON 1/14/2013.  ANC ON 2/8 WAS 312 AND INTERFERON WAS HELD.  LABS ON 2/15/2013 INDICATE A RISE IN THE ANC TO 3762. INTERFERON WAS REDUCED TO 15MILLION UNITS ON MON, WED AND FRI AND THIS WAS STARTED ON 2/18/2013
     Dates: end: 20130208

REACTIONS (1)
  - Neutrophil count decreased [None]

NARRATIVE: CASE EVENT DATE: 20130209
